FAERS Safety Report 14882989 (Version 2)
Quarter: 2018Q2

REPORT INFORMATION
  Report Type: Report from Study
  Country: FR (occurrence: FR)
  Receive Date: 20180511
  Receipt Date: 20180530
  Transmission Date: 20180711
  Serious: Yes (Death, Hospitalization)
  Sender: FDA-Public Use
  Company Number: FR-PFIZER INC-2018084853

PATIENT
  Age: 57 Year
  Sex: Female
  Weight: 44 kg

DRUGS (18)
  1. MOVICOL [Concomitant]
     Active Substance: POLYETHYLENE GLYCOL 3350\POTASSIUM CHLORIDE\SODIUM BICARBONATE\SODIUM CHLORIDE
     Dosage: UNK
     Route: 065
     Dates: start: 20161001, end: 20161101
  2. IRINOTECAN HCL [Suspect]
     Active Substance: IRINOTECAN HYDROCHLORIDE
     Indication: COLORECTAL CANCER METASTATIC
     Dosage: 208 MG, CYCLIC
     Route: 041
     Dates: start: 20160118, end: 20160118
  3. AFLIBERCEPT [Suspect]
     Active Substance: AFLIBERCEPT
     Indication: COLORECTAL CANCER METASTATIC
     Dosage: 184 MG, CYCLIC
     Route: 041
     Dates: start: 20160118, end: 20160118
  4. IRINOTECAN HCL [Suspect]
     Active Substance: IRINOTECAN HYDROCHLORIDE
     Dosage: 255 MG, CYCLIC
     Route: 041
     Dates: start: 20161017
  5. XERIAL [Concomitant]
     Dosage: UNK
     Route: 065
     Dates: start: 20160330, end: 20161101
  6. OXYCONTIN [Concomitant]
     Active Substance: OXYCODONE HYDROCHLORIDE
     Dosage: UNK
     Route: 065
     Dates: start: 20160118, end: 20161101
  7. LEUCOVORIN /00566701/ [Suspect]
     Active Substance: LEUCOVORIN
     Indication: COLORECTAL CANCER METASTATIC
     Dosage: 290 MG, CYCLIC
     Route: 041
     Dates: start: 20160118, end: 20160118
  8. FLUOROURACIL. [Suspect]
     Active Substance: FLUOROURACIL
     Indication: COLORECTAL CANCER METASTATIC
     Dosage: 3500 MG, CYCLIC
     Route: 042
     Dates: start: 20160118, end: 20160118
  9. AFLIBERCEPT [Suspect]
     Active Substance: AFLIBERCEPT
     Dosage: 176 MG, CYCLIC
     Route: 041
     Dates: start: 20161017
  10. DEXERYL /01579901/ [Concomitant]
     Active Substance: GLYCERIN\MINERAL OIL\PARAFFIN
     Dosage: UNK
     Route: 065
     Dates: start: 20160330, end: 20161101
  11. INEXIUM /01479303/ [Concomitant]
     Active Substance: ESOMEPRAZOLE
     Dosage: UNK
     Route: 065
     Dates: start: 20161001
  12. FLUOROURACIL. [Suspect]
     Active Substance: FLUOROURACIL
     Dosage: 455 MG, CYCLIC
     Route: 040
     Dates: start: 20161017
  13. FLUOROURACIL. [Suspect]
     Active Substance: FLUOROURACIL
     Dosage: 3400 MG, CYCLIC
     Route: 042
     Dates: start: 20161017
  14. LEUCOVORIN /00566701/ [Suspect]
     Active Substance: LEUCOVORIN
     Dosage: 284 MG, CYCLIC
     Route: 041
     Dates: start: 20161017
  15. OXYNORM [Concomitant]
     Active Substance: OXYCODONE HYDROCHLORIDE
     Dosage: UNK
     Route: 065
     Dates: start: 20160118, end: 20161101
  16. DOLIPRANE [Concomitant]
     Active Substance: ACETAMINOPHEN
     Dosage: UNK
     Route: 065
     Dates: start: 20160118, end: 20161101
  17. FLUOROURACIL. [Suspect]
     Active Substance: FLUOROURACIL
     Dosage: 580 MG, CYCLIC
     Route: 040
     Dates: start: 20160118, end: 20160118
  18. DIPROSONE [Concomitant]
     Active Substance: BETAMETHASONE DIPROPIONATE
     Dosage: UNK
     Route: 065
     Dates: start: 20151130, end: 20161101

REACTIONS (3)
  - Dysphagia [Not Recovered/Not Resolved]
  - General physical health deterioration [Fatal]
  - Proctalgia [Not Recovered/Not Resolved]

NARRATIVE: CASE EVENT DATE: 20161001
